FAERS Safety Report 9277489 (Version 2)
Quarter: 2013Q2

REPORT INFORMATION
  Report Type: Spontaneous
  Country: JP (occurrence: JP)
  Receive Date: 20130508
  Receipt Date: 20130521
  Transmission Date: 20140414
  Serious: Yes (Other)
  Sender: FDA-Public Use
  Company Number: JP-JNJFOC-20130416245

PATIENT
  Age: 6 Decade
  Sex: Female

DRUGS (7)
  1. INVEGA [Suspect]
     Indication: PRODUCT USED FOR UNKNOWN INDICATION
     Route: 048
  2. RISPERDAL [Suspect]
     Indication: RESTLESSNESS
     Route: 048
  3. IMPROMEN [Concomitant]
     Route: 048
  4. BENZALIN [Concomitant]
     Route: 048
  5. LODOPIN [Concomitant]
     Route: 048
  6. TEGRETOL [Concomitant]
     Route: 048
  7. LEVOTOMIN [Concomitant]
     Route: 065

REACTIONS (1)
  - Blood glucose increased [Unknown]
